FAERS Safety Report 21861374 (Version 2)
Quarter: 2023Q1

REPORT INFORMATION
  Report Type: Spontaneous
  Country: JP (occurrence: JP)
  Receive Date: 20230113
  Receipt Date: 20230124
  Transmission Date: 20230417
  Serious: No
  Sender: FDA-Public Use
  Company Number: JP-BAYER-2023A003989

PATIENT

DRUGS (1)
  1. KERENDIA [Suspect]
     Active Substance: FINERENONE
     Dosage: 20MG DIVIDED
     Route: 048

REACTIONS (2)
  - Product prescribing issue [None]
  - Wrong technique in product usage process [None]
